FAERS Safety Report 7524610-8 (Version None)
Quarter: 2011Q2

REPORT INFORMATION
  Report Type: 
  Country: None (occurrence: None)
  Receive Date: 20110606
  Receipt Date: 20110530
  Transmission Date: 20111010
  Serious: Yes (Other)
  Sender: FDA-Public Use
  Company Number: JP-JNJFOC-20110601151

PATIENT

DRUGS (3)
  1. FENTANYL CITRATE [Suspect]
     Indication: CANCER PAIN
     Route: 042
  2. FENTANYL-100 [Suspect]
     Indication: CANCER PAIN
     Route: 062
  3. FENTANYL-100 [Suspect]
     Route: 062

REACTIONS (2)
  - DELIRIUM [None]
  - SOMNOLENCE [None]
